FAERS Safety Report 25489781 (Version 2)
Quarter: 2025Q4

REPORT INFORMATION
  Report Type: Spontaneous
  Country: EU (occurrence: EU)
  Receive Date: 20250627
  Receipt Date: 20251210
  Transmission Date: 20260117
  Serious: Yes (Hospitalization)
  Sender: NOVARTIS
  Company Number: EU-002147023-NVSC2025DE032397

PATIENT
  Age: 12 Year
  Sex: Female
  Weight: 38 kg

DRUGS (7)
  1. FABHALTA [Suspect]
     Active Substance: IPTACOPAN HYDROCHLORIDE
     Indication: C3 glomerulopathy
     Dosage: 200 MG (TABLET) 2X1
     Route: 048
     Dates: start: 20241218
  2. FABHALTA [Suspect]
     Active Substance: IPTACOPAN HYDROCHLORIDE
     Dosage: UNK (TABLET), (2X1)
     Route: 048
  3. CELLCEPT [Suspect]
     Active Substance: MYCOPHENOLATE MOFETIL
     Indication: C3 glomerulopathy
     Dosage: 250 MG (2X1)
     Route: 048
     Dates: start: 20231002
  4. Resilez [Concomitant]
     Indication: C3 glomerulopathy
     Dosage: 75 MG
     Route: 048
     Dates: start: 20240325
  5. AMILORIDE [Concomitant]
     Active Substance: AMILORIDE
     Indication: Oedema
     Dosage: UNK, (5/50 MG), (COMP 5/50)
     Route: 048
     Dates: start: 20240325
  6. OMACOR [Concomitant]
     Active Substance: OMEGA-3-ACID ETHYL ESTERS
     Indication: Product used for unknown indication
     Dosage: 1000 MG
     Route: 065
     Dates: start: 20231002
  7. FUROSEMIDE [Concomitant]
     Active Substance: FUROSEMIDE
     Indication: Product used for unknown indication
     Dosage: 40 MG
     Route: 048
     Dates: start: 20241201

REACTIONS (4)
  - Sinusitis [Recovered/Resolved]
  - Abdominal pain [Recovered/Resolved]
  - Exercise tolerance decreased [Not Recovered/Not Resolved]
  - Off label use [Unknown]

NARRATIVE: CASE EVENT DATE: 20250201
